FAERS Safety Report 18561237 (Version 1)
Quarter: 2020Q4

REPORT INFORMATION
  Report Type: Spontaneous
  Country: CZ (occurrence: CZ)
  Receive Date: 20201130
  Receipt Date: 20201130
  Transmission Date: 20210114
  Serious: Yes (Life-Threatening, Other)
  Sender: FDA-Public Use
  Company Number: CZ-MYLANLABS-2020M1092513

PATIENT
  Age: 63 Year
  Sex: Female

DRUGS (6)
  1. ACETYLSALICYLIC ACID [Suspect]
     Active Substance: ASPIRIN
     Indication: HYPERTENSION
     Dosage: 100 MG
  2. ATORVASTATIN [Suspect]
     Active Substance: ATORVASTATIN
     Indication: HYPERTENSION
     Dosage: 10 MG, QD (IN THE MORNING)
  3. LOSARTAN. [Suspect]
     Active Substance: LOSARTAN
     Indication: HYPERTENSION
     Dosage: UNK UNK, BID (MORNING AND EVENING)
  4. BISOPROLOL [Suspect]
     Active Substance: BISOPROLOL
     Indication: HYPERTENSION
     Dosage: 5 MG, QD
  5. AMILORIDE HYDROCHLORIDE. [Suspect]
     Active Substance: AMILORIDE HYDROCHLORIDE
     Indication: DIURETIC THERAPY
     Dosage: 0.5 DF, QD (IN THE MORNING)
  6. METFORMIN [Suspect]
     Active Substance: METFORMIN HYDROCHLORIDE
     Indication: TYPE 2 DIABETES MELLITUS
     Dosage: 1000 MG, BID, (IN THE MORNING AND EVENING)

REACTIONS (15)
  - Nephropathy [Recovered/Resolved]
  - Glycosylated haemoglobin increased [Recovered/Resolved]
  - Polyneuropathy [Recovered/Resolved]
  - Arterial disorder [Recovered/Resolved]
  - Albuminuria [Recovered/Resolved]
  - Systolic hypertension [Recovered/Resolved]
  - Blood cholesterol increased [Recovered/Resolved]
  - Treatment noncompliance [Unknown]
  - Myocardial ischaemia [Recovered/Resolved]
  - Blood pressure increased [Recovered/Resolved]
  - Blood triglycerides increased [Recovered/Resolved]
  - Blood creatinine increased [Recovered/Resolved]
  - Dyspnoea [Recovered/Resolved]
  - Liver disorder [Recovered/Resolved]
  - Heart rate increased [Recovered/Resolved]
